FAERS Safety Report 7286198-9 (Version None)
Quarter: 2011Q1

REPORT INFORMATION
  Report Type: 
  Country: None (occurrence: None)
  Receive Date: 20110210
  Receipt Date: 20110209
  Transmission Date: 20110831
  Serious: Yes (Death)
  Sender: FDA-Public Use
  Company Number: JO-PFIZER INC-2011029006

PATIENT
  Sex: Female

DRUGS (3)
  1. TYGACIL [Suspect]
     Indication: ABDOMINAL INFECTION
     Dosage: 100 MG, 1X/DAY
     Route: 042
     Dates: start: 20110205, end: 20110205
  2. TYGACIL [Suspect]
     Indication: SOFT TISSUE INFECTION
     Dosage: 50 MG, 2X/DAY
     Route: 042
     Dates: start: 20110206
  3. TAZOCIN [Concomitant]
     Indication: ABDOMINAL INFECTION
     Dosage: 4.5 G, 4X/DAY
     Route: 042
     Dates: start: 20110205, end: 20110207

REACTIONS (1)
  - POST PROCEDURAL INFECTION [None]
